FAERS Safety Report 10784718 (Version 1)
Quarter: 2015Q1

REPORT INFORMATION
  Report Type: Spontaneous
  Country: IE (occurrence: None)
  Receive Date: 20150209
  Receipt Date: 20150209
  Transmission Date: 20150721
  Serious: Yes (Hospitalization)
  Sender: FDA-Public Use
  Company Number: INT_00680_2015

PATIENT
  Age: 26 Year
  Sex: Male

DRUGS (4)
  1. ETOPOSIDE (ETOPOSIDE) [Suspect]
     Active Substance: ETOPOSIDE
     Indication: TESTIS CANCER
  2. CISPLATIN (CISPLATIN) (HQ SPECIALTY) [Suspect]
     Active Substance: CISPLATIN
     Indication: TESTIS CANCER
     Dosage: DF FOR 2 CYCLES), (UNKNOWN DF FOR 1 CYCLE)
  3. IFOSFAMIDE (IFOSFAMIDE) [Suspect]
     Active Substance: IFOSFAMIDE
     Indication: TESTIS CANCER
     Dosage: DF FOR 2 CYCLES, UNKNOWN DF FOR 1 CYCLES
  4. BLEOMYCIN [Suspect]
     Active Substance: BLEOMYCIN SULFATE
     Indication: TESTIS CANCER
     Dosage: (DF)

REACTIONS (4)
  - Embolism [None]
  - Carotid artery occlusion [None]
  - Pulmonary embolism [None]
  - Cerebral infarction [None]
